FAERS Safety Report 12037366 (Version 2)
Quarter: 2016Q2

REPORT INFORMATION
  Report Type: Report from Study
  Country: US (occurrence: US)
  Receive Date: 20160208
  Receipt Date: 20160503
  Transmission Date: 20160815
  Serious: Yes (Death)
  Sender: FDA-Public Use
  Company Number: US-ROCHE-1393587

PATIENT
  Age: 99 Year

DRUGS (1)
  1. LUCENTIS [Suspect]
     Active Substance: RANIBIZUMAB
     Indication: NEOVASCULAR AGE-RELATED MACULAR DEGENERATION
     Dosage: LAST TREATMENT DATE: 06/DEC/2013, RIGHT EYE
     Route: 050
     Dates: end: 20131206

REACTIONS (1)
  - Death [Fatal]

NARRATIVE: CASE EVENT DATE: 20140405
